FAERS Safety Report 5479308-7 (Version None)
Quarter: 2007Q4

REPORT INFORMATION
  Report Type: 
  Country: None (occurrence: None)
  Receive Date: 20071008
  Receipt Date: 20071003
  Transmission Date: 20080405
  Serious: Yes (Death, Hospitalization, Other)
  Sender: FDA-Public Use
  Company Number: PHEH2007US11038

PATIENT
  Age: 77 Year
  Sex: Male

DRUGS (3)
  1. EXJADE [Suspect]
     Dosage: 125MG QD, 1000MG QD
     Route: 048
     Dates: start: 20070710
  2. VIDAZA [Concomitant]
  3. MYLOTARG [Concomitant]

REACTIONS (14)
  - ACUTE LEUKAEMIA [None]
  - ANAEMIA [None]
  - BACTERIAL INFECTION [None]
  - CHILLS [None]
  - EATING DISORDER [None]
  - EPISTAXIS [None]
  - FATIGUE [None]
  - FUNGAEMIA [None]
  - FUNGUS CULTURE POSITIVE [None]
  - HYPOXIA [None]
  - MALNUTRITION [None]
  - MYELODYSPLASTIC SYNDROME [None]
  - PYREXIA [None]
  - SEPSIS [None]
